FAERS Safety Report 8202516-9 (Version None)
Quarter: 2012Q1

REPORT INFORMATION
  Report Type: 
  Country: None (occurrence: None)
  Receive Date: 20120312
  Receipt Date: 20120309
  Transmission Date: 20120608
  Serious: No
  Sender: FDA-Public Use
  Company Number: US-BAYER-2012-023690

PATIENT
  Age: 70 Year
  Sex: Female

DRUGS (5)
  1. LEVOTHYROXINE SODIUM [Concomitant]
     Dosage: 0.025 MG, UNK
  2. METOPROLOL SUCCINATE [Concomitant]
     Dosage: 100 MG, UNK
  3. EXFORGE [Concomitant]
     Dosage: 10-160MG
  4. SIMVASTATIN [Concomitant]
     Dosage: 10 MG, UNK
  5. BETASERON [Suspect]
     Dosage: 1 ML, QOD
     Route: 058

REACTIONS (3)
  - BLISTER [None]
  - PRURITUS [None]
  - RASH [None]
